FAERS Safety Report 10540411 (Version 1)
Quarter: 2014Q4

REPORT INFORMATION
  Report Type: Spontaneous
  Country: US (occurrence: US)
  Receive Date: 20141024
  Receipt Date: 20141024
  Transmission Date: 20150529
  Serious: No
  Sender: FDA-Public Use
  Company Number: US-UPSHER-SMITH LABORATORIES, INC.-14000030

PATIENT
  Age: 67 Year
  Sex: Female

DRUGS (6)
  1. KLOR-CON M [Suspect]
     Active Substance: POTASSIUM CHLORIDE
     Indication: DIURETIC THERAPY
     Dosage: 20 MEQ, QD
     Route: 048
     Dates: start: 2012, end: 20131225
  2. CHONDROITIN SULFATE (BOVINE)\GLUCOSAMINE SULFATE [Concomitant]
     Active Substance: CHONDROITIN SULFATE (BOVINE)\GLUCOSAMINE SULFATE
     Dosage: UNK
  3. CHLORTHALIDONE. [Concomitant]
     Active Substance: CHLORTHALIDONE
     Indication: NEPHROLITHIASIS
     Dosage: UNK
     Dates: start: 2012, end: 20131225
  4. ASPIRIN. [Concomitant]
     Active Substance: ASPIRIN
     Dosage: UNK
  5. FISH OIL [Concomitant]
     Active Substance: FISH OIL
     Dosage: UNK
  6. MULTIVITAMIN [Concomitant]
     Active Substance: VITAMINS
     Dosage: UNK

REACTIONS (1)
  - Constipation [Recovered/Resolved]

NARRATIVE: CASE EVENT DATE: 201312
